FAERS Safety Report 24046392 (Version 3)
Quarter: 2024Q3

REPORT INFORMATION
  Report Type: Spontaneous
  Country: FR (occurrence: FR)
  Receive Date: 20240703
  Receipt Date: 20240730
  Transmission Date: 20241017
  Serious: Yes (Hospitalization)
  Sender: JOHNSON AND JOHNSON
  Company Number: None

PATIENT
  Age: 68 Year
  Sex: Female
  Weight: 67 kg

DRUGS (16)
  1. DARZALEX [Suspect]
     Active Substance: DARATUMUMAB
     Indication: Plasma cell myeloma
     Dosage: C4J1
     Route: 058
     Dates: start: 20240417, end: 20240417
  2. VELCADE [Suspect]
     Active Substance: BORTEZOMIB
     Indication: Plasma cell myeloma
     Dosage: C5J1
     Route: 058
     Dates: start: 20240417, end: 20240417
  3. REVLIMID [Suspect]
     Active Substance: LENALIDOMIDE
     Indication: Plasma cell myeloma
     Dosage: C5J1
     Route: 048
     Dates: start: 20240417, end: 20240422
  4. ESIDREX [Concomitant]
     Active Substance: HYDROCHLOROTHIAZIDE
  5. ESOMEPRAZOLE [Concomitant]
     Active Substance: ESOMEPRAZOLE
  6. AMLODIPINE BESYLATE [Concomitant]
     Active Substance: AMLODIPINE BESYLATE
  7. FUROSEMIDE [Concomitant]
     Active Substance: FUROSEMIDE
  8. IRBESARTAN [Concomitant]
     Active Substance: IRBESARTAN
  9. LEVOTHYROXINE AND LIOTHYRONINE [THYROID] [Concomitant]
  10. KARDEGIC [Concomitant]
     Active Substance: ASPIRIN DL-LYSINE
  11. BIMATOPROST [Concomitant]
     Active Substance: BIMATOPROST
  12. INSULIN GLARGINE [Concomitant]
     Active Substance: INSULIN GLARGINE
  13. CALCIUM POLYSTYRENE SULFONATE [Concomitant]
     Active Substance: CALCIUM POLYSTYRENE SULFONATE
     Dosage: 1 MEASURING SPOON
  14. NOVORAPID [Concomitant]
     Active Substance: INSULIN ASPART
  15. RENAGEL [Concomitant]
     Active Substance: SEVELAMER HYDROCHLORIDE
  16. BRINZOLAMIDE [Concomitant]
     Active Substance: BRINZOLAMIDE

REACTIONS (4)
  - Encephalopathy [Recovered/Resolved]
  - Coma [Recovered/Resolved]
  - Asthenia [Unknown]
  - Confusional state [Unknown]

NARRATIVE: CASE EVENT DATE: 20240423
